FAERS Safety Report 13752377 (Version 4)
Quarter: 2021Q3

REPORT INFORMATION
  Report Type: Spontaneous
  Country: US (occurrence: US)
  Receive Date: 20170713
  Receipt Date: 20210817
  Transmission Date: 20211014
  Serious: No
  Sender: FDA-Public Use
  Company Number: US-JAZZ-JPI-P-030635

PATIENT
  Age: 60 Year
  Sex: Female
  Weight: 65.31 kg

DRUGS (7)
  1. XYREM [Suspect]
     Active Substance: SODIUM OXYBATE
     Indication: NARCOLEPSY
     Dosage: 4.5 G, BID
     Route: 048
  2. XYREM [Suspect]
     Active Substance: SODIUM OXYBATE
     Dosage: 3.75 G, BID
     Route: 048
     Dates: start: 20130420
  3. INDERAL GRADUALE [Concomitant]
  4. XYREM [Suspect]
     Active Substance: SODIUM OXYBATE
     Indication: THYROID DISORDER
     Dosage: .5G, BID
     Route: 048
     Dates: start: 20091124
  5. XYREM [Suspect]
     Active Substance: SODIUM OXYBATE
     Indication: INSOMNIA
     Dosage: SINGLE (TITRATING DOSE)
     Route: 048
  6. XYREM [Suspect]
     Active Substance: SODIUM OXYBATE
     Indication: CATAPLEXY
     Dosage: UNKNOWN, SINGLE
     Route: 048
     Dates: end: 20130419
  7. LEVOTHYROXINE. [Concomitant]
     Active Substance: LEVOTHYROXINE

REACTIONS (14)
  - Mental disorder [Not Recovered/Not Resolved]
  - Dyskinesia [Recovered/Resolved]
  - Insomnia [Not Recovered/Not Resolved]
  - Abnormal sleep-related event [Recovered/Resolved]
  - Retching [Recovered/Resolved]
  - Sleep apnoea syndrome [Recovered/Resolved]
  - Sleep disorder [Not Recovered/Not Resolved]
  - Hyperhidrosis [Recovered/Resolved]
  - Anxiety [Recovered/Resolved]
  - Fall [Recovered/Resolved]
  - Cystitis interstitial [Unknown]
  - Urine flow decreased [Not Recovered/Not Resolved]
  - Cortisol increased [Unknown]
  - Weight decreased [Unknown]

NARRATIVE: CASE EVENT DATE: 200911
